FAERS Safety Report 13628517 (Version 1)
Quarter: 2017Q2

REPORT INFORMATION
  Report Type: Spontaneous
  Country: US (occurrence: US)
  Receive Date: 20170608
  Receipt Date: 20170608
  Transmission Date: 20170830
  Serious: Yes (Hospitalization)
  Sender: FDA-Public Use
  Company Number: US-PFIZER INC-2017249047

PATIENT
  Age: 35 Year
  Sex: Female
  Weight: 56.69 kg

DRUGS (2)
  1. SEPTRA [Suspect]
     Active Substance: SULFAMETHOXAZOLE\TRIMETHOPRIM
     Indication: INFECTION
     Dosage: 1 DF, 1X/DAY
     Dates: start: 20170107, end: 20170108
  2. MELATONIN [Suspect]
     Active Substance: MELATONIN
     Dosage: 30 MG, 1X/DAY  [SIX TABLETS, ONCE DAILY]
     Route: 048
     Dates: start: 201701, end: 20170108

REACTIONS (4)
  - Haemorrhage urinary tract [Unknown]
  - Kidney infection [Unknown]
  - Eye swelling [Recovered/Resolved]
  - Eye pruritus [Recovered/Resolved]

NARRATIVE: CASE EVENT DATE: 20170108
